FAERS Safety Report 15435590 (Version 3)
Quarter: 2018Q4

REPORT INFORMATION
  Report Type: Spontaneous
  Country: US (occurrence: US)
  Receive Date: 20180927
  Receipt Date: 20181018
  Transmission Date: 20190204
  Serious: Yes (Hospitalization)
  Sender: FDA-Public Use
  Company Number: US-FRESENIUS MEDICAL CARE RENAL THERAPIES GROUP-FMC-1809-001730

PATIENT
  Age: 72 Year
  Sex: Female
  Weight: 85.2 kg

DRUGS (17)
  1. DELFLEX WITH DEXTROSE 2.5% LOW MAGNESIUM LOW CALCIUM [Suspect]
     Active Substance: CALCIUM CHLORIDE\DEXTROSE\MAGNESIUM CHLORIDE\SODIUM CHLORIDE\SODIUM LACTATE
     Indication: END STAGE RENAL DISEASE
     Route: 033
     Dates: start: 201502
  2. DELFLEX WITH DEXTROSE 1.5% LOW MAGNESIUM LOW CALCIUM [Suspect]
     Active Substance: CALCIUM CHLORIDE\DEXTROSE\MAGNESIUM CHLORIDE\SODIUM CHLORIDE\SODIUM LACTATE
     Indication: END STAGE RENAL DISEASE
     Route: 033
     Dates: start: 201502
  3. ATORVASTATIN [Concomitant]
     Active Substance: ATORVASTATIN
  4. BISACODYL. [Concomitant]
     Active Substance: BISACODYL
  5. CHOLECALCIFEROL [Concomitant]
     Active Substance: CHOLECALCIFEROL
  6. ALBUTEROL. [Concomitant]
     Active Substance: ALBUTEROL
  7. RENVELA [Concomitant]
     Active Substance: SEVELAMER CARBONATE
  8. COUMADIN [Concomitant]
     Active Substance: WARFARIN SODIUM
  9. INSULIN [Concomitant]
     Active Substance: INSULIN NOS
  10. SIMVASTATIN. [Concomitant]
     Active Substance: SIMVASTATIN
  11. RANITIDINE. [Concomitant]
     Active Substance: RANITIDINE
  12. FAMOTIDINE. [Concomitant]
     Active Substance: FAMOTIDINE
  13. EPOETIN ALFA [Concomitant]
     Active Substance: ERYTHROPOIETIN
  14. CARVEDILOL. [Concomitant]
     Active Substance: CARVEDILOL
  15. JANUVIA [Concomitant]
     Active Substance: SITAGLIPTIN PHOSPHATE
  16. CALCIUM ACETATE. [Concomitant]
     Active Substance: CALCIUM ACETATE
  17. MIDODRINE [Concomitant]
     Active Substance: MIDODRINE

REACTIONS (2)
  - Peritonitis [Recovered/Resolved]
  - Sepsis [Recovered/Resolved]

NARRATIVE: CASE EVENT DATE: 20180726
